FAERS Safety Report 5858340-5 (Version None)
Quarter: 2008Q3

REPORT INFORMATION
  Report Type: 
  Country: None (occurrence: None)
  Receive Date: 20080826
  Receipt Date: 20080819
  Transmission Date: 20090109
  Serious: Yes (Other)
  Sender: FDA-Public Use
  Company Number: PHBS2008CA05163

PATIENT

DRUGS (3)
  1. DICLOFENAC [Suspect]
     Indication: PROCEDURAL PAIN
  2. OPIOIDS [Suspect]
     Route: 037
  3. ACETAMINOPHEN [Suspect]

REACTIONS (5)
  - COMPUTERISED TOMOGRAM ABNORMAL [None]
  - GAIT DISTURBANCE [None]
  - LACTATION DISORDER [None]
  - MUSCLE HAEMORRHAGE [None]
  - PAIN [None]
